FAERS Safety Report 8560834-9 (Version None)
Quarter: 2012Q3

REPORT INFORMATION
  Report Type: 
  Country: None (occurrence: None)
  Receive Date: 20120727
  Receipt Date: 20120727
  Transmission Date: 20120928
  Serious: Yes (Hospitalization)
  Sender: FDA-Public Use
  Company Number: None

PATIENT
  Age: 71 Year
  Sex: Female
  Weight: 84.7 kg

DRUGS (26)
  1. PHENERGAN HCL [Suspect]
     Indication: PAIN
     Dosage: 25MG TID PRN PO CHRONIC
     Route: 048
  2. ESTRADIOL-NARISODRINE [Concomitant]
  3. SIMVASTATIN [Concomitant]
  4. TAZTIA XT [Concomitant]
  5. LOVAZA [Concomitant]
  6. LATANOPROST [Concomitant]
  7. ASPIRIN [Concomitant]
  8. ALBUTEROL [Concomitant]
  9. FLEXERIL [Suspect]
     Indication: PAIN
     Dosage: 10MG TID PO CHRONIC
     Route: 048
  10. MECLIZINE [Suspect]
     Indication: PAIN
     Dosage: 25MG Q6H PRN PO CHRONIC
     Route: 048
  11. PHENERGAN HCL [Concomitant]
  12. MAG CARBONATE [Concomitant]
  13. VITAMIN D [Concomitant]
  14. NITROGLYCERIN [Concomitant]
  15. ARANESP [Concomitant]
  16. NORCO [Suspect]
     Indication: PAIN
     Dosage: 10/325MG BID PRN PO CHRONIC
     Route: 048
  17. NEURONTIN [Suspect]
     Dosage: PO BID
     Route: 048
  18. FUROSEMIDE [Concomitant]
  19. NEXIUM [Concomitant]
  20. FLUTICASONE PROPIONATE [Concomitant]
  21. TYLENOL [Concomitant]
  22. SINGULAIR [Concomitant]
  23. GLUCAGON [Concomitant]
  24. ZANTAC [Concomitant]
  25. HYZAAR [Concomitant]
  26. TRUSOPT [Concomitant]

REACTIONS (2)
  - METABOLIC ENCEPHALOPATHY [None]
  - HALLUCINATION [None]
